FAERS Safety Report 20139149 (Version 1)
Quarter: 2021Q4

REPORT INFORMATION
  Report Type: Report from Study
  Country: US (occurrence: US)
  Receive Date: 20211202
  Receipt Date: 20211202
  Transmission Date: 20220303
  Serious: Yes (Hospitalization)
  Sender: FDA-Public Use
  Company Number: US-UCBSA-2021055175

PATIENT
  Sex: Male

DRUGS (1)
  1. CERTOLIZUMAB PEGOL [Suspect]
     Active Substance: CERTOLIZUMAB PEGOL
     Indication: Psoriatic arthropathy
     Dosage: 400 MILLIGRAM, EV 4 WEEKS
     Dates: start: 20210402, end: 2021

REACTIONS (4)
  - Cellulitis [Recovered/Resolved]
  - Urticaria [Recovered/Resolved]
  - Sinusitis [Recovered/Resolved]
  - Drug ineffective [Unknown]
